FAERS Safety Report 15498768 (Version 1)
Quarter: 2018Q4

REPORT INFORMATION
  Report Type: Spontaneous
  Country: FR (occurrence: FR)
  Receive Date: 20181015
  Receipt Date: 20181015
  Transmission Date: 20190205
  Serious: Yes (Hospitalization)
  Sender: FDA-Public Use
  Company Number: FR-009507513-1810FRA005188

PATIENT
  Age: 89 Year
  Sex: Male
  Weight: 102 kg

DRUGS (5)
  1. IKOREL [Concomitant]
     Active Substance: NICORANDIL
  2. LASILIX [Concomitant]
     Active Substance: FUROSEMIDE
  3. CARDENSIEL [Concomitant]
     Active Substance: BISOPROLOL FUMARATE
  4. KEYTRUDA [Suspect]
     Active Substance: PEMBROLIZUMAB
     Indication: METASTATIC MALIGNANT MELANOMA
     Dosage: 210 MG, Q3W
     Route: 042
     Dates: start: 20180327, end: 20180630
  5. PREVISCAN (FLUINDIONE) [Concomitant]
     Active Substance: FLUINDIONE

REACTIONS (3)
  - Chest pain [Not Recovered/Not Resolved]
  - Hypothyroidism [Recovering/Resolving]
  - Hypophysitis [Recovering/Resolving]

NARRATIVE: CASE EVENT DATE: 201803
